FAERS Safety Report 7988826-9 (Version None)
Quarter: 2011Q4

REPORT INFORMATION
  Report Type: 
  Country: None (occurrence: None)
  Receive Date: 20111215
  Receipt Date: 20111215
  Transmission Date: 20120403
  Serious: Yes (Other)
  Sender: FDA-Public Use
  Company Number: None

PATIENT
  Sex: Female
  Weight: 90.2 kg

DRUGS (2)
  1. HYDROXYCHLOROQUIN 200MG UNK [Suspect]
     Indication: POLYMYALGIA RHEUMATICA
     Dosage: 200MG BID ORAL
     Route: 048
     Dates: start: 20111014
  2. HYDROXYCHLOROQUIN 200MG UNK [Suspect]
     Indication: RHEUMATOID ARTHRITIS
     Dosage: 200MG BID ORAL
     Route: 048
     Dates: start: 20111014

REACTIONS (2)
  - DIARRHOEA [None]
  - ABDOMINAL PAIN UPPER [None]
